FAERS Safety Report 9326017 (Version 1)
Quarter: 2013Q2

REPORT INFORMATION
  Report Type: Spontaneous
  Country: US (occurrence: US)
  Receive Date: 20130604
  Receipt Date: 20130604
  Transmission Date: 20140414
  Serious: No
  Sender: FDA-Public Use
  Company Number: US-009507513-1306USA000202

PATIENT
  Sex: Male

DRUGS (6)
  1. JANUMET [Suspect]
     Indication: DIABETES MELLITUS
     Dosage: UNK
     Route: 048
     Dates: start: 201005, end: 201209
  2. LIPITOR [Concomitant]
  3. GLYBURIDE [Concomitant]
  4. ATORVASTATIN [Concomitant]
  5. CRESTOR [Concomitant]
  6. NIASPAN [Concomitant]

REACTIONS (1)
  - Renal impairment [Unknown]
